FAERS Safety Report 25942528 (Version 1)
Quarter: 2025Q4

REPORT INFORMATION
  Report Type: Report from Study
  Country: US (occurrence: US)
  Receive Date: 20251021
  Receipt Date: 20251021
  Transmission Date: 20260118
  Serious: No
  Sender: SANDOZ
  Company Number: US-SANDOZ-SDZ2025US075846

PATIENT
  Age: 11 Year
  Sex: Male

DRUGS (2)
  1. OMNITROPE [Suspect]
     Active Substance: SOMATROPIN
     Indication: Product used for unknown indication
     Dosage: 1.3 MG, QD (10 MG / 1.5 ML)
     Route: 058
     Dates: start: 20250911
  2. OMNITROPE [Suspect]
     Active Substance: SOMATROPIN
     Indication: Product used for unknown indication
     Dosage: 1.3 MG, QD (10 MG / 1.5 ML)
     Route: 058
     Dates: start: 20250911

REACTIONS (6)
  - Swelling face [Recovering/Resolving]
  - Swelling [Recovering/Resolving]
  - Periorbital swelling [Recovering/Resolving]
  - Injection site discharge [Unknown]
  - Exposure via skin contact [Unknown]
  - Incorrect dose administered [Unknown]

NARRATIVE: CASE EVENT DATE: 20250901
